FAERS Safety Report 4570475-6 (Version None)
Quarter: 2005Q1

REPORT INFORMATION
  Report Type: 
  Country: None (occurrence: None)
  Receive Date: 20050203
  Receipt Date: 20050203
  Transmission Date: 20050727
  Serious: Yes (Life-Threatening, Hospitalization)
  Sender: FDA-Public Use
  Company Number: None

PATIENT
  Sex: Male
  Weight: 92.9874 kg

DRUGS (1)
  1. LEVAQUIN [Suspect]
     Indication: ANAPHYLACTIC REACTION
     Dosage: FIRST PILL   OCCLUSIVE
     Route: 046
     Dates: start: 20050128, end: 20050128

REACTIONS (1)
  - ANAPHYLACTIC REACTION [None]
